FAERS Safety Report 14698638 (Version 1)
Quarter: 2018Q1

REPORT INFORMATION
  Report Type: Spontaneous
  Country: CN (occurrence: CN)
  Receive Date: 20180330
  Receipt Date: 20180330
  Transmission Date: 20180509
  Serious: Yes (Other)
  Sender: FDA-Public Use
  Company Number: CN-ALKEM LABORATORIES LIMITED-CN-ALKEM-2018-01679

PATIENT
  Age: 63 Year
  Sex: Male

DRUGS (1)
  1. CEFUROXIME AXETIL. [Suspect]
     Active Substance: CEFUROXIME AXETIL
     Indication: PRODUCT USED FOR UNKNOWN INDICATION
     Dosage: 1 MG/0.1 ML, INTRA-CAMERAL SOLUTION, INJECTED INTO THE ANTERIOR CHAMBER
     Route: 065

REACTIONS (4)
  - Serous retinal detachment [Recovered/Resolved]
  - Toxicity to various agents [Unknown]
  - Macular oedema [Recovered/Resolved]
  - Retinal injury [Unknown]
